FAERS Safety Report 9284799 (Version 2)
Quarter: 2013Q2

REPORT INFORMATION
  Report Type: Report from Study
  Country: CA (occurrence: CA)
  Receive Date: 20130513
  Receipt Date: 20130513
  Transmission Date: 20140414
  Serious: No
  Sender: FDA-Public Use
  Company Number: CA-ROCHE-1220733

PATIENT
  Age: 56 Year
  Sex: Female
  Weight: 65 kg

DRUGS (4)
  1. ACTEMRA [Suspect]
     Indication: RHEUMATOID ARTHRITIS
     Route: 042
     Dates: start: 20130404
  2. METHOTREXATE [Concomitant]
  3. TYLENOL #1 (CANADA) [Concomitant]
     Dosage: TYNELOL OTC, AS REQUIRED
     Route: 065
  4. FOLIC ACID [Concomitant]

REACTIONS (2)
  - Musculoskeletal stiffness [Not Recovered/Not Resolved]
  - Arthritis [Not Recovered/Not Resolved]
